FAERS Safety Report 8583622-6 (Version None)
Quarter: 2012Q3

REPORT INFORMATION
  Report Type: 
  Country: None (occurrence: None)
  Receive Date: 20120809
  Receipt Date: 20110221
  Transmission Date: 20120928
  Serious: Yes (Hospitalization)
  Sender: FDA-Public Use
  Company Number: US-009507513-2010SP062599

PATIENT

DRUGS (2)
  1. RIBAVIRIN (+) INTERFERON ALFA-2B [Suspect]
     Dosage: 1000 MG, QD
     Dates: start: 20100101, end: 20100601
  2. PEGASYS [Suspect]
     Dosage: UNK UNK, UNKNOWN
     Route: 058
     Dates: start: 20100101, end: 20100601

REACTIONS (3)
  - EXPOSURE VIA FATHER [None]
  - HYPERTENSION [None]
  - PREMATURE SEPARATION OF PLACENTA [None]
